FAERS Safety Report 6103298-7 (Version None)
Quarter: 2009Q1

REPORT INFORMATION
  Report Type: 
  Country: None (occurrence: None)
  Receive Date: 20090305
  Receipt Date: 20090218
  Transmission Date: 20090719
  Serious: Yes (Hospitalization)
  Sender: FDA-Public Use
  Company Number: US-SANOFI-SYNTHELABO-A03200900740

PATIENT
  Age: 51 Year
  Sex: Male

DRUGS (3)
  1. FLOMAX [Concomitant]
     Dosage: UNK
     Route: 065
     Dates: start: 20090106, end: 20090112
  2. UROXATRAL [Suspect]
     Indication: PROSTATOMEGALY
     Route: 048
     Dates: start: 20081218, end: 20090105
  3. UROXATRAL [Suspect]
     Route: 048
     Dates: start: 20090113

REACTIONS (3)
  - ABDOMINAL PAIN [None]
  - DIARRHOEA [None]
  - PNEUMONIA [None]
